FAERS Safety Report 13692150 (Version 1)
Quarter: 2017Q2

REPORT INFORMATION
  Report Type: Spontaneous
  Country: US (occurrence: US)
  Receive Date: 20170627
  Receipt Date: 20170627
  Transmission Date: 20170830
  Serious: No
  Sender: FDA-Public Use
  Company Number: US-ASTRAZENECA-2017SE64243

PATIENT
  Age: 72 Year
  Sex: Female

DRUGS (2)
  1. HUMIRA [Suspect]
     Active Substance: ADALIMUMAB
     Indication: RHEUMATOID ARTHRITIS
     Dosage: 40 MILLIGRAMS PER 0.8 MILLILITRE EVERY TWO WEEKS
     Route: 058
     Dates: start: 20170322
  2. CRESTOR [Suspect]
     Active Substance: ROSUVASTATIN CALCIUM
     Indication: BLOOD CHOLESTEROL INCREASED
     Route: 048

REACTIONS (4)
  - Muscle spasms [Not Recovered/Not Resolved]
  - Increased upper airway secretion [Recovered/Resolved]
  - Oropharyngeal pain [Recovered/Resolved]
  - Muscular weakness [Not Recovered/Not Resolved]

NARRATIVE: CASE EVENT DATE: 2017
